FAERS Safety Report 9508797 (Version 1)
Quarter: 2013Q1

REPORT INFORMATION
  Report Type: Spontaneous
  Country: US (occurrence: None)
  Receive Date: 20130305
  Receipt Date: 20130305
  Transmission Date: 20140127
  Serious: Yes (Other)
  Sender: FDA-Public Use
  Company Number: 163-21880-12090434

PATIENT
  Age: 71 Year
  Sex: Female
  Weight: 48.99 kg

DRUGS (14)
  1. REVLIMID [Suspect]
     Indication: PLASMA CELL MYELOMA
     Dosage: 10 MG, 21 IN 21 D, PO
     Route: 048
     Dates: start: 20110114
  2. AZASITE (AZITHROMYCIN) [Concomitant]
  3. CALCIUM WITH VITAMIN D (CALCIUM WITH VITAMIN D) [Concomitant]
  4. FOLIC ACID (FOLIC ACID) [Concomitant]
  5. LEVOTHROID (LEVOTHYROXINE SODIUM) [Concomitant]
  6. LIBRAX [Concomitant]
  7. LORAZEPAM [Concomitant]
  8. LORTAB (VICODIN) [Concomitant]
  9. MULTIVITAMINS [Concomitant]
  10. NEXIUM [Concomitant]
  11. PLAQUENIL (HYDROXYCHLOROQUINE PHOSPHATE) [Concomitant]
  12. PROBIOTIC (BIFIDOBACTERIUM LACTIS) [Concomitant]
  13. VITAMIN B12 (CYANOCOBALAMIN) [Concomitant]
  14. XIFAXAN (RIFAXIMIN) [Concomitant]

REACTIONS (1)
  - Irritable bowel syndrome [None]
